FAERS Safety Report 7933945-6 (Version None)
Quarter: 2011Q4

REPORT INFORMATION
  Report Type: 
  Country: None (occurrence: None)
  Receive Date: 20111122
  Receipt Date: 20111115
  Transmission Date: 20120403
  Serious: Yes (Other)
  Sender: FDA-Public Use
  Company Number: JP-JNJFOC-20111107436

PATIENT
  Sex: Female
  Weight: 55 kg

DRUGS (10)
  1. REMICADE [Suspect]
     Route: 042
     Dates: start: 20100408
  2. ISONIAZID [Concomitant]
     Indication: ANTIBIOTIC PROPHYLAXIS
     Route: 048
     Dates: start: 20090918, end: 20100925
  3. REMICADE [Suspect]
     Route: 042
     Dates: start: 20090925
  4. REMICADE [Suspect]
     Route: 042
     Dates: start: 20100812
  5. REMICADE [Suspect]
     Indication: BEHCET'S SYNDROME
     Route: 042
     Dates: start: 20091105
  6. REMICADE [Suspect]
     Route: 042
     Dates: start: 20091224
  7. RINDERON-A [Concomitant]
     Indication: BEHCET'S SYNDROME
     Dates: start: 20090917, end: 20100925
  8. REMICADE [Suspect]
     Route: 042
     Dates: start: 20091009
  9. REMICADE [Suspect]
     Route: 042
     Dates: start: 20100218
  10. REMICADE [Suspect]
     Route: 042
     Dates: start: 20100610

REACTIONS (1)
  - CATARACT [None]
